FAERS Safety Report 9271117 (Version 2)
Quarter: 2013Q3

REPORT INFORMATION
  Report Type: Spontaneous
  Country: US (occurrence: US)
  Receive Date: 20130506
  Receipt Date: 20130801
  Transmission Date: 20140515
  Serious: Yes (Death)
  Sender: FDA-Public Use
  Company Number: US-GENZYME-FABR-1003215

PATIENT
  Sex: Male
  Weight: 55 kg

DRUGS (2)
  1. FABRAZYME [Suspect]
     Indication: FABRY^S DISEASE
     Dosage: 140 MG, Q2W (MIX IN 500 ML OF NORMAL SALINE)
     Route: 042
     Dates: start: 200506
  2. TEGRETOL [Concomitant]
     Indication: PAIN
     Dosage: 200 MG, TID
     Route: 065

REACTIONS (1)
  - Road traffic accident [Fatal]
